FAERS Safety Report 4534348-7 (Version None)
Quarter: 2004Q4

REPORT INFORMATION
  Report Type: 
  Country: None (occurrence: None)
  Receive Date: 20041214
  Receipt Date: 20040820
  Transmission Date: 20050328
  Serious: No
  Sender: FDA-Public Use
  Company Number: USA040876128

PATIENT
  Age: 58 Year
  Sex: Male
  Weight: 100 kg

DRUGS (3)
  1. CIALIS [Suspect]
     Dosage: 20 MG
     Dates: start: 20040723
  2. ALLOPURINOL [Concomitant]
  3. FLOMAX MR (TAMSULOSIN HYDROCHLORIDE) [Concomitant]

REACTIONS (3)
  - MUSCLE CRAMP [None]
  - PAIN IN EXTREMITY [None]
  - SLEEP DISORDER [None]
